FAERS Safety Report 18915789 (Version 3)
Quarter: 2024Q1

REPORT INFORMATION
  Report Type: Spontaneous
  Country: PK (occurrence: PK)
  Receive Date: 20210219
  Receipt Date: 20240313
  Transmission Date: 20240410
  Serious: Yes (Other)
  Sender: FDA-Public Use
  Company Number: PK-PFIZER INC-2021149138

PATIENT
  Age: 40 Day
  Sex: Female

DRUGS (16)
  1. MEROPENEM [Suspect]
     Active Substance: MEROPENEM
     Indication: Necrotising colitis
     Dosage: 20 MG/KG, 2X/DAY, FROM THE FOURTH DOL
  2. MEROPENEM [Suspect]
     Active Substance: MEROPENEM
     Indication: Sepsis
     Dosage: 40 MG/KG, 3X/DAY, MENINGITIC DOSES, FROM THE 22ND DOL
  3. MEROPENEM [Suspect]
     Active Substance: MEROPENEM
     Dosage: 20 MG/KG, SEPTIC DOSES
  4. CAFFEINE [Concomitant]
     Active Substance: CAFFEINE
     Indication: Infantile apnoea
     Dosage: 20 MG/KG, FROM THE FIRST DAY OF LIFE
  5. VITAMIN K [Concomitant]
     Active Substance: PHYTONADIONE
     Indication: Prophylaxis
     Dosage: 1 MG,  FROM THE FIRST DAY OF LIFE
  6. AMPICILLIN [Concomitant]
     Active Substance: AMPICILLIN
     Dosage: UNK, FROM THE SECOND DAY OF LIFE
  7. GENTAMICIN SULFATE [Concomitant]
     Active Substance: GENTAMICIN SULFATE
     Dosage: UNK
  8. FLUCONAZOLE [Concomitant]
     Active Substance: FLUCONAZOLE
     Indication: Antifungal prophylaxis
     Dosage: UNK, FROM THE SECOND DAY OF LIFE
  9. VANCOMYCIN [Concomitant]
     Active Substance: VANCOMYCIN
     Indication: Necrotising colitis
     Dosage: 10 MG/KG, 1X/DAY, FROM THE FOURTH DOL
  10. VANCOMYCIN [Concomitant]
     Active Substance: VANCOMYCIN
     Indication: Sepsis
     Dosage: 15 MG/KG, 2X/DAY, FROM THE 22ND DOL
  11. COLISTIN [Concomitant]
     Active Substance: COLISTIN
     Indication: Necrotising colitis
     Dosage: 5 MG/KG, LOADING DOSE, FROM THE FOURTH DOL
  12. COLISTIN [Concomitant]
     Active Substance: COLISTIN
     Indication: Sepsis
     Dosage: 1.5 MG/KG, 2X/DAY, MAINTENANCE DOSE
  13. ACETAMINOPHEN [Concomitant]
     Active Substance: ACETAMINOPHEN
     Dosage: UNK, FROM THE FIFTH DOL
  14. DIAZEPAM [Concomitant]
     Active Substance: DIAZEPAM
     Indication: Generalised tonic-clonic seizure
     Dosage: SINGLE-DOSE, ON THE 25TH DOL
  15. PHENOBARBITAL [Concomitant]
     Active Substance: PHENOBARBITAL
     Dosage: UNK, LOADING DOSE, FROM THE 25TH DOL
  16. PHENOBARBITAL [Concomitant]
     Active Substance: PHENOBARBITAL
     Dosage: UNK, MAINTENANCE DOSES

REACTIONS (4)
  - Pancytopenia [Recovered/Resolved]
  - Thrombocytopenia neonatal [Recovered/Resolved]
  - Anaemia neonatal [Recovered/Resolved]
  - Neutropenia neonatal [Recovered/Resolved]
